FAERS Safety Report 9783898 (Version 1)
Quarter: 2013Q4

REPORT INFORMATION
  Report Type: Spontaneous
  Country: US (occurrence: US)
  Receive Date: 20131226
  Receipt Date: 20131226
  Transmission Date: 20140711
  Serious: Yes (Hospitalization)
  Sender: FDA-Public Use
  Company Number: US-PFIZER INC-2013364343

PATIENT
  Age: 66 Year
  Sex: Female
  Weight: 56.69 kg

DRUGS (1)
  1. SUTENT [Suspect]
     Indication: SARCOMA
     Dosage: 12.5 MG, 1X/DAY
     Route: 048
     Dates: start: 201304, end: 20131212

REACTIONS (3)
  - Off label use [Unknown]
  - Cardiac failure congestive [Not Recovered/Not Resolved]
  - Local swelling [Not Recovered/Not Resolved]
